FAERS Safety Report 7272865-X (Version None)
Quarter: 2011Q1

REPORT INFORMATION
  Report Type: 
  Country: None (occurrence: None)
  Receive Date: 20110126
  Receipt Date: 20110114
  Transmission Date: 20110831
  Serious: Yes (Hospitalization, Other)
  Sender: FDA-Public Use
  Company Number: 8033756

PATIENT
  Sex: Male
  Weight: 71 kg

DRUGS (3)
  1. ISONICID [Concomitant]
  2. CERTOLIZUMAB PEGOL (CERTOLIZUMAB PEGOL) [Suspect]
     Indication: CROHN'S DISEASE
     Dosage: 400 MG, 1X/2 WEEKS, - NR OF DOSES: 3 SUBCUTANEOUS; 400 MG ONCE MONETHLY SUBCUTANEOUS
     Route: 058
     Dates: start: 20050311, end: 20080522
  3. CERTOLIZUMAB PEGOL (CERTOLIZUMAB PEGOL) [Suspect]
     Indication: CROHN'S DISEASE
     Dosage: 400 MG, 1X/2 WEEKS, - NR OF DOSES: 3 SUBCUTANEOUS; 400 MG ONCE MONETHLY SUBCUTANEOUS
     Route: 058
     Dates: start: 20040825, end: 20050226

REACTIONS (10)
  - APHTHOUS STOMATITIS [None]
  - ASTHENIA [None]
  - LYMPHADENOPATHY [None]
  - EATING DISORDER [None]
  - ABDOMINAL PAIN [None]
  - ABDOMINAL ABSCESS [None]
  - PYREXIA [None]
  - DYSPHAGIA [None]
  - DIARRHOEA [None]
  - TREATMENT FAILURE [None]
